FAERS Safety Report 7307975-1 (Version None)
Quarter: 2011Q1

REPORT INFORMATION
  Report Type: 
  Country: None (occurrence: None)
  Receive Date: 20110223
  Receipt Date: 20110217
  Transmission Date: 20110831
  Serious: Yes (Death, Hospitalization, Other)
  Sender: FDA-Public Use
  Company Number: JP-BAYER-2011-005109

PATIENT
  Sex: Female
  Weight: 32 kg

DRUGS (13)
  1. SORAFENIB (RAF KINASE INHIBITOR) [Suspect]
     Indication: HEPATIC NEOPLASM MALIGNANT
     Dosage: DAILY DOSE 800 MG
     Route: 048
     Dates: start: 20090730, end: 20090902
  2. SORAFENIB (RAF KINASE INHIBITOR) [Suspect]
     Dosage: 200 MG, QOD
  3. OMEPRAL [Concomitant]
     Indication: GASTRIC ULCER
     Dosage: DAILY DOSE 20 MG
     Route: 048
  4. LACB-R [Concomitant]
     Indication: DIARRHOEA
     Dosage: DAILY DOSE 3 G
     Route: 048
  5. FERROUS CITRATE [Concomitant]
     Indication: ANAEMIA
     Dosage: DAILY DOSE 100 MG
     Route: 048
  6. SORAFENIB (RAF KINASE INHIBITOR) [Suspect]
     Dosage: DAILY DOSE 400 MG
     Route: 048
     Dates: start: 20090903
  7. LOPEMIN [Concomitant]
     Indication: DIARRHOEA
     Dosage: DAILY DOSE 2 MG
     Route: 048
  8. GLAKAY [Concomitant]
     Indication: OSTEOPOROSIS
     Dosage: DAILY DOSE 45 MG
     Route: 048
  9. LIVACT [Concomitant]
     Indication: HYPOALBUMINAEMIA
     Dosage: DAILY DOSE 12.45 G
     Route: 048
  10. GASTROM [Concomitant]
     Indication: GASTRIC ULCER
     Dosage: DAILY DOSE 3 G
     Route: 048
  11. TANNALBIN [Concomitant]
     Indication: DIARRHOEA
     Dosage: DAILY DOSE 3 G
     Route: 048
  12. LENDORMIN [Concomitant]
     Indication: INSOMNIA
     Dosage: DAILY DOSE .5 MG
     Route: 048
  13. CELECOXIB [Concomitant]
     Indication: BACK PAIN
     Dosage: DAILY DOSE 200 MG
     Route: 048

REACTIONS (4)
  - HEPATIC NEOPLASM MALIGNANT [None]
  - HYPOGLYCAEMIA [None]
  - DECREASED APPETITE [None]
  - PALMAR-PLANTAR ERYTHRODYSAESTHESIA SYNDROME [None]
